FAERS Safety Report 6712038-X (Version None)
Quarter: 2010Q2

REPORT INFORMATION
  Report Type: 
  Country: None (occurrence: None)
  Receive Date: 20100505
  Receipt Date: 20100429
  Transmission Date: 20101027
  Serious: Yes (Hospitalization)
  Sender: FDA-Public Use
  Company Number: US-PFIZER INC-2010055013

PATIENT
  Sex: Male
  Weight: 99.773 kg

DRUGS (11)
  1. MYCOBUTIN [Suspect]
     Indication: MYCOBACTERIUM AVIUM COMPLEX INFECTION
     Dosage: 150 MG, 2X/DAY
     Route: 048
     Dates: start: 20090901, end: 20091201
  2. MYCOBUTIN [Suspect]
     Dosage: UNK
     Dates: start: 20100101, end: 20100129
  3. ETHAMBUTOL [Suspect]
     Indication: MYCOBACTERIUM AVIUM COMPLEX INFECTION
     Dosage: 400 MG, 1X/DAY
     Dates: start: 20090901, end: 20100129
  4. BIAXIN [Suspect]
     Indication: MYCOBACTERIUM AVIUM COMPLEX INFECTION
     Dosage: 500 MG, 2X/DAY
     Dates: start: 20090901, end: 20100129
  5. DIGOXIN [Suspect]
     Indication: CARDIAC DISORDER
     Dosage: UNK
     Dates: start: 20090901, end: 20100129
  6. PRILOSEC [Concomitant]
     Indication: ULCER
     Dosage: 20 MG, 1X/DAY
     Route: 048
  7. ATENOLOL [Concomitant]
     Indication: VENTRICULAR TACHYCARDIA
     Dosage: 50 MG, 2X/DAY
     Route: 048
  8. COUMADIN [Concomitant]
     Indication: ATRIAL FIBRILLATION
     Dosage: 5 MG, 1X/DAY
     Route: 048
     Dates: start: 20070101
  9. NORVASC [Concomitant]
     Indication: HYPERTENSION
     Dosage: 5 MG, 1X/DAY
     Route: 048
  10. NEURONTIN [Concomitant]
     Indication: NEUROPATHY PERIPHERAL
     Dosage: 5 MG, 1X/DAY
     Route: 048
  11. NEURONTIN [Concomitant]
     Indication: RESTLESS LEGS SYNDROME

REACTIONS (4)
  - COGNITIVE DISORDER [None]
  - DYSSTASIA [None]
  - GAIT DISTURBANCE [None]
  - INCOHERENT [None]
